FAERS Safety Report 25487040 (Version 3)
Quarter: 2025Q3

REPORT INFORMATION
  Report Type: Spontaneous
  Country: CA (occurrence: CA)
  Receive Date: 20250627
  Receipt Date: 20250924
  Transmission Date: 20251020
  Serious: Yes (Hospitalization, Other)
  Sender: CELLTRION
  Company Number: CA-CELLTRION INC.-2025CA019935

PATIENT

DRUGS (1)
  1. STEQEYMA [Suspect]
     Active Substance: USTEKINUMAB-STBA
     Indication: Psoriasis
     Route: 058
     Dates: start: 20250227

REACTIONS (4)
  - Pulmonary artery aneurysm [Recovering/Resolving]
  - Pneumonia [Recovering/Resolving]
  - Condition aggravated [Unknown]
  - Oedema peripheral [Unknown]
